FAERS Safety Report 6039637-5 (Version None)
Quarter: 2009Q1

REPORT INFORMATION
  Report Type: 
  Country: None (occurrence: None)
  Receive Date: 20090116
  Receipt Date: 20090113
  Transmission Date: 20090719
  Serious: Yes (Death)
  Sender: FDA-Public Use
  Company Number: US-BRISTOL-MYERS SQUIBB COMPANY-14468839

PATIENT
  Age: 26 Year
  Sex: Female

DRUGS (5)
  1. FOSINOPRIL SODIUM [Suspect]
     Route: 048
  2. ACETAMINOPHEN [Suspect]
     Route: 048
  3. VALPROIC ACID [Suspect]
     Route: 048
  4. VITAMIN + IRON [Suspect]
     Route: 048
  5. DULOXETINE HCL [Suspect]
     Route: 048

REACTIONS (1)
  - COMPLETED SUICIDE [None]
